FAERS Safety Report 7459754-2 (Version None)
Quarter: 2011Q2

REPORT INFORMATION
  Report Type: 
  Country: None (occurrence: None)
  Receive Date: 20110505
  Receipt Date: 20110429
  Transmission Date: 20111010
  Serious: Yes (Hospitalization)
  Sender: FDA-Public Use
  Company Number: DE-TEVA-279395GER

PATIENT
  Sex: Male

DRUGS (5)
  1. VINORELBINE [Suspect]
     Indication: NON-SMALL CELL LUNG CANCER STAGE III
     Dates: start: 20110322, end: 20110329
  2. PACLITAXEL [Concomitant]
     Indication: NON-SMALL CELL LUNG CANCER STAGE III
     Dates: start: 20110113, end: 20110225
  3. CISPLATIN [Suspect]
     Indication: NON-SMALL CELL LUNG CANCER STAGE III
     Dates: start: 20110113, end: 20110329
  4. RADIOTHERAPY [Suspect]
     Dates: start: 20110408
  5. RADIOTHERAPY [Suspect]
     Indication: NON-SMALL CELL LUNG CANCER STAGE III
     Dates: start: 20110321

REACTIONS (1)
  - DYSPHAGIA [None]
